FAERS Safety Report 6846631-0 (Version None)
Quarter: 2010Q3

REPORT INFORMATION
  Report Type: 
  Country: None (occurrence: None)
  Receive Date: 20100715
  Receipt Date: 20071102
  Transmission Date: 20110219
  Serious: No
  Sender: FDA-Public Use
  Company Number: US-PFIZER INC-2007078872

PATIENT
  Sex: Male
  Weight: 100 kg

DRUGS (4)
  1. CHANTIX [Suspect]
     Indication: SMOKING CESSATION THERAPY
     Dates: start: 20070801
  2. LOTREL [Concomitant]
     Dosage: 5/10 MG
  3. OMEPRAZOLE [Concomitant]
  4. LIPITOR [Concomitant]

REACTIONS (3)
  - ASTHENOPIA [None]
  - EYE DISORDER [None]
  - VISUAL ACUITY REDUCED [None]
